FAERS Safety Report 4305071-9 (Version None)
Quarter: 2004Q1

REPORT INFORMATION
  Report Type: 
  Country: None (occurrence: None)
  Receive Date: 20040226
  Receipt Date: 20040210
  Transmission Date: 20041129
  Serious: Yes (Other)
  Sender: FDA-Public Use
  Company Number: US-GLAXOSMITHKLINE-A0497752A

PATIENT
  Age: 62 Year
  Sex: Male

DRUGS (8)
  1. REQUIP [Suspect]
     Indication: PARKINSON'S DISEASE
     Dosage: .5MG THREE TIMES PER DAY
     Route: 048
     Dates: start: 20030131
  2. PRAVACHOL [Concomitant]
  3. BECONASE [Concomitant]
  4. VITAMIN E [Concomitant]
  5. NEXIUM [Concomitant]
  6. LASIX [Concomitant]
  7. POTASSIUM [Concomitant]
  8. FOLIC ACID [Concomitant]

REACTIONS (15)
  - AGITATION [None]
  - ANAEMIA [None]
  - BACK PAIN [None]
  - BRADYPHRENIA [None]
  - COMMUNICATION DISORDER [None]
  - DEPRESSED LEVEL OF CONSCIOUSNESS [None]
  - DRY MOUTH [None]
  - DYSARTHRIA [None]
  - DYSPHEMIA [None]
  - FEELING ABNORMAL [None]
  - MEDICATION ERROR [None]
  - NEPHROLITHIASIS [None]
  - NERVOUSNESS [None]
  - OEDEMA [None]
  - THIRST [None]
